FAERS Safety Report 9032177 (Version 1)
Quarter: 2013Q1

REPORT INFORMATION
  Report Type: Spontaneous
  Country: IT (occurrence: IT)
  Receive Date: 20130122
  Receipt Date: 20130122
  Transmission Date: 20140127
  Serious: Yes (Hospitalization)
  Sender: FDA-Public Use
  Company Number: IT-PFIZER INC-2013024006

PATIENT
  Age: 47 Year
  Sex: Female

DRUGS (4)
  1. EFEXOR ER [Suspect]
     Dosage: 150 MG DAILY
     Route: 048
     Dates: start: 20120101, end: 20130114
  2. RIVOTRIL [Suspect]
     Dosage: 30 DROPS DAILY
     Route: 048
     Dates: start: 20120101, end: 20130114
  3. ZYPREXA [Suspect]
     Dosage: UNK
     Dates: start: 20120101, end: 20130114
  4. LAMICTAL [Concomitant]
     Dosage: UNK

REACTIONS (3)
  - Coma [Unknown]
  - Toxicity to various agents [Unknown]
  - Alcohol poisoning [Unknown]
